FAERS Safety Report 21884346 (Version 2)
Quarter: 2023Q1

REPORT INFORMATION
  Report Type: Report from Study
  Country: US (occurrence: None)
  Receive Date: 20230119
  Receipt Date: 20230216
  Transmission Date: 20230418
  Serious: Yes (Hospitalization)
  Sender: FDA-Public Use
  Company Number: US-Eisai Medical Research-EC-2023-132082

PATIENT
  Age: 60 Year
  Sex: Male

DRUGS (6)
  1. LENVIMA [Suspect]
     Active Substance: LENVATINIB
     Indication: Renal cancer
     Route: 048
     Dates: start: 20210108, end: 202102
  2. LENVIMA [Suspect]
     Active Substance: LENVATINIB
     Route: 048
     Dates: start: 202102, end: 20210324
  3. LENVIMA [Suspect]
     Active Substance: LENVATINIB
     Route: 048
     Dates: start: 20210603, end: 2021
  4. LENVIMA [Suspect]
     Active Substance: LENVATINIB
     Route: 048
     Dates: start: 2021, end: 2022
  5. LENVIMA [Suspect]
     Active Substance: LENVATINIB
     Route: 048
     Dates: start: 20221225
  6. EVEROLIMUS [Concomitant]
     Active Substance: EVEROLIMUS
     Indication: Product used for unknown indication
     Dosage: DOSE AND FREQUENCY UNKNOWN

REACTIONS (3)
  - Diarrhoea [Not Recovered/Not Resolved]
  - Dehydration [Unknown]
  - Myalgia [Not Recovered/Not Resolved]

NARRATIVE: CASE EVENT DATE: 20210201
